FAERS Safety Report 7819702-X (Version None)
Quarter: 2011Q4

REPORT INFORMATION
  Report Type: 
  Country: None (occurrence: None)
  Receive Date: 20111018
  Receipt Date: 20110113
  Transmission Date: 20120403
  Serious: No
  Sender: FDA-Public Use
  Company Number: US-ASTRAZENECA-2009SE33217

PATIENT
  Age: 55 Year
  Sex: Female

DRUGS (2)
  1. SYMBICORT [Suspect]
     Dosage: 160/4.5 MCG. 2 PUFFS
     Route: 055
  2. NEXIUM [Suspect]
     Route: 048

REACTIONS (4)
  - RIB FRACTURE [None]
  - MALAISE [None]
  - FALL [None]
  - HAND FRACTURE [None]
